FAERS Safety Report 8161796-9 (Version None)
Quarter: 2012Q1

REPORT INFORMATION
  Report Type: 
  Country: None (occurrence: None)
  Receive Date: 20120224
  Receipt Date: 20120217
  Transmission Date: 20120608
  Serious: Yes (Other)
  Sender: FDA-Public Use
  Company Number: US-CELGENEUS-163-21880-12022096

PATIENT
  Sex: Male

DRUGS (9)
  1. FLUCONAZOLE [Concomitant]
     Route: 065
  2. WARFARIN SODIUM [Concomitant]
     Route: 065
  3. HYDROCORTISONE [Concomitant]
     Route: 065
  4. VALACICLOVIR [Concomitant]
     Route: 065
  5. FENOFIBRATE [Concomitant]
     Route: 065
  6. ALLOPURINOL [Concomitant]
     Route: 065
  7. DEXAMETHASONE [Concomitant]
     Route: 065
  8. REVLIMID [Suspect]
     Dosage: 10 MILLIGRAM
     Route: 048
     Dates: start: 20120113
  9. TRAMADOL HCL [Concomitant]
     Route: 065

REACTIONS (1)
  - UPPER LIMB FRACTURE [None]
